FAERS Safety Report 4514373-2 (Version None)
Quarter: 2004Q4

REPORT INFORMATION
  Report Type: 
  Country: None (occurrence: None)
  Receive Date: 20041130
  Receipt Date: 20041125
  Transmission Date: 20050328
  Serious: Yes (Other)
  Sender: FDA-Public Use
  Company Number: DE-MERCK-0411DEU00496

PATIENT
  Age: 49 Year
  Sex: Male
  Weight: 75 kg

DRUGS (2)
  1. VIOXX [Suspect]
     Indication: BACK PAIN
     Route: 048
     Dates: start: 20040312, end: 20040601
  2. TRAMADOL HYDROCHLORIDE [Concomitant]
     Route: 048
     Dates: start: 20040312

REACTIONS (2)
  - RETINAL ARTERY OCCLUSION [None]
  - TRANSIENT ISCHAEMIC ATTACK [None]
